FAERS Safety Report 6254277-0 (Version None)
Quarter: 2009Q3

REPORT INFORMATION
  Report Type: 
  Country: None (occurrence: None)
  Receive Date: 20090701
  Receipt Date: 20090701
  Transmission Date: 20100115
  Serious: Yes (Life-Threatening)
  Sender: FDA-Public Use
  Company Number: None

PATIENT
  Age: 67 Year
  Sex: Male

DRUGS (1)
  1. OMEPRAZOLE [Suspect]
     Dosage: 20MG DAILY PO
     Route: 048

REACTIONS (3)
  - CLOSTRIDIUM DIFFICILE COLITIS [None]
  - RENAL FAILURE [None]
  - SEPSIS [None]
